FAERS Safety Report 16908768 (Version 1)
Quarter: 2019Q4

REPORT INFORMATION
  Report Type: Spontaneous
  Country: US (occurrence: US)
  Receive Date: 20190820
  Receipt Date: 20190820
  Transmission Date: 20200122
  Serious: No
  Sender: FDA-Public Use
  Company Number: None

PATIENT
  Age: 42 Year
  Sex: Male

DRUGS (1)
  1. WILD OREGANO OIL-HUGE 4 OZ BOTTLE-PURE, UNDILUTED, UNFILTERED OIL OF O [Suspect]
     Active Substance: OREGANO LEAF OIL

REACTIONS (5)
  - Product advertising issue [None]
  - Dyspepsia [None]
  - Incorrect route of product administration [None]
  - Throat irritation [None]
  - Oral discomfort [None]

NARRATIVE: CASE EVENT DATE: 20190730
